FAERS Safety Report 13280705 (Version 2)
Quarter: 2017Q2

REPORT INFORMATION
  Report Type: Report from Study
  Country: JP (occurrence: JP)
  Receive Date: 20170301
  Receipt Date: 20170419
  Transmission Date: 20170830
  Serious: Yes (Hospitalization)
  Sender: FDA-Public Use
  Company Number: JP-ROCHE-1594172

PATIENT
  Age: 4 Year
  Sex: Male
  Weight: 25 kg

DRUGS (20)
  1. NEORAL [Suspect]
     Active Substance: CYCLOSPORINE
     Route: 048
     Dates: end: 20140303
  2. POLARAMINE [Concomitant]
     Active Substance: DEXCHLORPHENIRAMINE MALEATE
     Indication: PREMEDICATION
     Dosage: ONCE AS PREMEDICATION BEFORE RITUXIMAB
     Route: 048
     Dates: start: 20141104, end: 20141104
  3. BAKTAR [Concomitant]
     Active Substance: SULFAMETHOXAZOLE\TRIMETHOPRIM
     Indication: INFECTION PROPHYLAXIS
     Route: 048
  4. ATARAX-P [Concomitant]
     Active Substance: HYDROXYZINE HYDROCHLORIDE
     Indication: PREMEDICATION
     Route: 048
     Dates: start: 20151030, end: 20151030
  5. PREDNISOLONE. [Concomitant]
     Active Substance: PREDNISOLONE
     Indication: NEPHROTIC SYNDROME
     Route: 048
     Dates: start: 20100220
  6. RITUXIMAB [Suspect]
     Active Substance: RITUXIMAB
     Indication: NEPHROTIC SYNDROME
     Route: 041
     Dates: start: 20131120, end: 20131120
  7. RITUXIMAB [Suspect]
     Active Substance: RITUXIMAB
     Route: 042
     Dates: start: 20151030, end: 20151030
  8. LONGES [Concomitant]
     Active Substance: LISINOPRIL
     Dosage: RENAL PROTECTION IN THE CONTEXT OF NEPHROTIC SYNDROME
     Route: 048
     Dates: start: 20080129
  9. NEORAL [Suspect]
     Active Substance: CYCLOSPORINE
     Indication: NEPHROTIC SYNDROME
     Route: 048
     Dates: start: 20080119
  10. CALONAL [Concomitant]
     Active Substance: ACETAMINOPHEN
     Indication: PREMEDICATION
     Dosage: ONCE AS PREMIDICATION BEFORE RITUXIMAB
     Route: 048
     Dates: start: 20141104, end: 20141104
  11. MYCOPHENOLATE MOFETIL. [Suspect]
     Active Substance: MYCOPHENOLATE MOFETIL
     Indication: NEPHROTIC SYNDROME
     Route: 048
     Dates: start: 20130110, end: 20160310
  12. MYCOPHENOLATE MOFETIL. [Suspect]
     Active Substance: MYCOPHENOLATE MOFETIL
     Route: 048
     Dates: start: 20160314
  13. RITUXIMAB [Suspect]
     Active Substance: RITUXIMAB
     Indication: NEPHROTIC SYNDROME
     Route: 041
     Dates: start: 20141104, end: 20141104
  14. METHYLPREDNISOLONE SODIUM SUCCINATE. [Concomitant]
     Active Substance: METHYLPREDNISOLONE SODIUM SUCCINATE
     Indication: NEPHROTIC SYNDROME
     Route: 042
     Dates: start: 20130206, end: 20130208
  15. METHYLPREDNISOLONE SODIUM SUCCINATE. [Concomitant]
     Active Substance: METHYLPREDNISOLONE SODIUM SUCCINATE
     Indication: PREMEDICATION
     Dosage: ONCE AS PREMIDICATION BEFORE RITUXIMAB
     Route: 042
     Dates: start: 20141104, end: 20141104
  16. FAMOTIDINE. [Concomitant]
     Active Substance: FAMOTIDINE
     Indication: GASTRITIS
     Dosage: DRUG REPORTED AS BLOSTAR M
     Route: 048
  17. RITUXIMAB [Suspect]
     Active Substance: RITUXIMAB
     Route: 042
     Dates: start: 20100316
  18. MIYA-BM [Concomitant]
     Active Substance: CLOSTRIDIUM BUTYRICUM SPORES STRAIN M-55
     Indication: CONSTIPATION
     Route: 048
  19. METHYLPREDNISOLONE SODIUM SUCCINATE. [Concomitant]
     Active Substance: METHYLPREDNISOLONE SODIUM SUCCINATE
     Dosage: ONCE AS PREMIDICATION BEFORE RITUXIMAB
     Route: 042
     Dates: start: 20151030, end: 20151030
  20. CALONAL [Concomitant]
     Active Substance: ACETAMINOPHEN
     Dosage: ONCE AS PREMIDICATION BEFORE RITUXIMAB
     Route: 048
     Dates: start: 20151030, end: 20151030

REACTIONS (9)
  - Upper respiratory tract inflammation [Recovering/Resolving]
  - Pneumonia bacterial [Recovered/Resolved]
  - Oropharyngeal discomfort [Recovered/Resolved]
  - Agranulocytosis [Recovered/Resolved]
  - Neutropenia [Unknown]
  - Off label use [Unknown]
  - Abdominal pain [Recovered/Resolved]
  - Hot flush [Recovered/Resolved]
  - Panic disorder [Not Recovered/Not Resolved]

NARRATIVE: CASE EVENT DATE: 20100511
